FAERS Safety Report 8102869-6 (Version None)
Quarter: 2012Q1

REPORT INFORMATION
  Report Type: 
  Country: None (occurrence: None)
  Receive Date: 20120201
  Receipt Date: 20120118
  Transmission Date: 20120608
  Serious: Yes (Hospitalization)
  Sender: FDA-Public Use
  Company Number: DE-CELGENEUS-062-50794-10111966

PATIENT
  Age: 66 Year
  Sex: Male
  Weight: 97 kg

DRUGS (13)
  1. FLUTICASONE PROPIONATE/SALMETEROL [Concomitant]
     Route: 065
  2. TAMSULOSIN HCL [Concomitant]
     Dosage: .4 DOSAGE FORMS
     Route: 065
  3. VIDAZA [Suspect]
     Indication: REFRACTORY ANAEMIA WITH AN EXCESS OF BLASTS
     Route: 058
     Dates: start: 20101102, end: 20101111
  4. VOLTAREN [Suspect]
     Dosage: REDUCED
     Route: 065
  5. ACETYLSALICYLIC ACID SRT [Concomitant]
     Dosage: 100 MILLIGRAM
     Route: 065
  6. BISOPROLOL [Concomitant]
     Dosage: 5 MILLIGRAM
     Route: 065
  7. SIMVASTATIN [Concomitant]
     Dosage: 10 MILLIGRAM
     Route: 065
  8. LEVOFLOXACIN [Concomitant]
     Route: 065
     Dates: start: 20101107, end: 20101112
  9. VIDAZA [Suspect]
     Indication: MYELODYSPLASTIC SYNDROME
     Route: 058
     Dates: start: 20100118, end: 20100901
  10. VOLTAREN [Suspect]
     Dosage: HIGH DOSE
     Route: 065
     Dates: start: 20101111, end: 20101112
  11. OMEPRAZOLE [Suspect]
     Dosage: 20 MILLIGRAM
     Route: 065
     Dates: start: 20101111
  12. IBUPROFEN [Suspect]
     Indication: BACK PAIN
     Route: 065
     Dates: start: 20101111
  13. AMLODIPINE [Concomitant]
     Dosage: 10 MILLIGRAM
     Route: 065

REACTIONS (2)
  - COLITIS ISCHAEMIC [None]
  - HAEMATOCHEZIA [None]
